FAERS Safety Report 19579597 (Version 1)
Quarter: 2021Q3

REPORT INFORMATION
  Report Type: Spontaneous
  Country: DE (occurrence: DE)
  Receive Date: 20210720
  Receipt Date: 20210720
  Transmission Date: 20211014
  Serious: Yes (Hospitalization, Other)
  Sender: FDA-Public Use
  Company Number: DE-GRANULES-DE-2021GRALIT00414

PATIENT
  Age: 72 Year
  Sex: Male

DRUGS (16)
  1. PREDNISOLONE. [Concomitant]
     Active Substance: PREDNISOLONE
     Indication: HEPATITIS
     Route: 042
  2. RANITIDINE. [Suspect]
     Active Substance: RANITIDINE
     Indication: GASTROOESOPHAGEAL REFLUX DISEASE
     Route: 065
  3. PEMBROLIZUMAB. [Suspect]
     Active Substance: PEMBROLIZUMAB
     Indication: GASTROOESOPHAGEAL REFLUX DISEASE
     Dosage: 300/2MG DAILY
     Route: 065
  4. RIBOCICLIB. [Concomitant]
     Active Substance: RIBOCICLIB
     Indication: METASTASES TO LUNG
  5. APIXABAN [Concomitant]
     Active Substance: APIXABAN
     Indication: PRODUCT USED FOR UNKNOWN INDICATION
     Route: 065
  6. URSODEOXYCHOLIC ACID [Interacting]
     Active Substance: URSODIOL
     Indication: PRIMARY BILIARY CHOLANGITIS
     Route: 065
  7. RANITIDINE. [Suspect]
     Active Substance: RANITIDINE
     Route: 065
  8. BINIMETINIB [Concomitant]
     Active Substance: BINIMETINIB
     Indication: METASTASES TO LUNG
  9. BISOPROLOL [Concomitant]
     Active Substance: BISOPROLOL
     Indication: PRODUCT USED FOR UNKNOWN INDICATION
     Route: 065
  10. PREDNISOLONE. [Concomitant]
     Active Substance: PREDNISOLONE
     Route: 048
  11. PANTOPRAZOLE [Suspect]
     Active Substance: PANTOPRAZOLE
     Indication: GASTROOESOPHAGEAL REFLUX DISEASE
     Route: 065
  12. BINIMETINIB [Concomitant]
     Active Substance: BINIMETINIB
     Indication: METASTASES TO SOFT TISSUE
     Route: 065
  13. ATORVASTATIN [Concomitant]
     Active Substance: ATORVASTATIN
     Indication: HYPERCHOLESTEROLAEMIA
     Route: 065
  14. ENCORAFENIB [Concomitant]
     Active Substance: ENCORAFENIB
     Indication: METASTASES TO LUNG
  15. RIBOCICLIB. [Concomitant]
     Active Substance: RIBOCICLIB
     Indication: METASTASES TO SOFT TISSUE
     Route: 065
  16. ENCORAFENIB [Concomitant]
     Active Substance: ENCORAFENIB
     Indication: METASTASES TO SOFT TISSUE
     Route: 065

REACTIONS (1)
  - Primary biliary cholangitis [Unknown]
